FAERS Safety Report 12441315 (Version 1)
Quarter: 2016Q2

REPORT INFORMATION
  Report Type: Spontaneous
  Country: IE (occurrence: None)
  Receive Date: 20160606
  Receipt Date: 20160606
  Transmission Date: 20160815
  Serious: No
  Sender: FDA-Public Use
  Company Number: None

PATIENT

DRUGS (1)
  1. GENERIC CYMBALTA [Suspect]
     Active Substance: DULOXETINE HYDROCHLORIDE

REACTIONS (3)
  - Product container seal issue [None]
  - Failure of child resistant mechanism for pharmaceutical product [None]
  - Product formulation issue [None]

NARRATIVE: CASE EVENT DATE: 20160525
